FAERS Safety Report 6968722-6 (Version None)
Quarter: 2010Q3

REPORT INFORMATION
  Report Type: 
  Country: None (occurrence: None)
  Receive Date: 20100907
  Receipt Date: 20100830
  Transmission Date: 20110219
  Serious: Yes (Other)
  Sender: FDA-Public Use
  Company Number: US-MERCK-1006USA02709

PATIENT
  Age: 56 Year
  Sex: Female
  Weight: 55 kg

DRUGS (26)
  1. STROMECTOL [Suspect]
     Indication: ACARODERMATITIS
     Route: 048
     Dates: start: 20100607, end: 20100607
  2. KAPIDEX [Concomitant]
     Route: 065
  3. SAVELLA [Concomitant]
     Route: 065
  4. TERBINAFINE [Suspect]
     Indication: TINEA PEDIS
     Route: 065
     Dates: start: 20100609, end: 20100610
  5. GABAPENTIN [Concomitant]
     Route: 048
  6. PROMETHAZINE [Concomitant]
     Route: 048
  7. MOBIC [Concomitant]
     Indication: FIBROMYALGIA
     Route: 065
     Dates: start: 20100118
  8. TRAZODONE HYDROCHLORIDE [Concomitant]
     Route: 065
  9. SYNTHROID [Concomitant]
     Route: 048
  10. INDERAL [Concomitant]
     Route: 048
  11. INDERAL [Concomitant]
     Route: 048
  12. PRINIVIL [Concomitant]
     Route: 048
  13. PREDNISONE [Concomitant]
     Route: 048
  14. METHADONE HYDROCHLORIDE [Concomitant]
     Indication: ACARODERMATITIS
     Route: 048
  15. AZATHIOPRINE [Concomitant]
     Route: 065
  16. DIAZEPAM [Concomitant]
     Route: 048
  17. PAMELOR [Concomitant]
     Route: 048
  18. PREVACID [Concomitant]
     Route: 065
  19. AMOXICILLIN [Concomitant]
     Route: 065
  20. LASIX [Concomitant]
     Route: 065
  21. PLAQUENIL [Concomitant]
     Route: 065
  22. SAVELLA [Concomitant]
     Route: 065
  23. VITAMIN D (UNSPECIFIED) [Concomitant]
     Route: 065
  24. VITAMINS (UNSPECIFIED) [Concomitant]
     Route: 065
  25. CALCIUM (UNSPECIFIED) AND VITAMIN D (UNSPECIFIED) [Concomitant]
     Route: 065
  26. IMURAN [Concomitant]
     Route: 065
     Dates: start: 20091112, end: 20100609

REACTIONS (20)
  - ABNORMAL FAECES [None]
  - ALOPECIA [None]
  - APHASIA [None]
  - DRY MOUTH [None]
  - DYSPNOEA [None]
  - EAR INFECTION [None]
  - FLUSHING [None]
  - GASTROINTESTINAL MOTILITY DISORDER [None]
  - HEADACHE [None]
  - HEART RATE INCREASED [None]
  - LIP SWELLING [None]
  - MUSCULOSKELETAL DISCOMFORT [None]
  - ORAL DISCOMFORT [None]
  - RED BLOOD CELL COUNT DECREASED [None]
  - SOMATIC DELUSION [None]
  - SWOLLEN TONGUE [None]
  - URINE COLOUR ABNORMAL [None]
  - URINE ODOUR ABNORMAL [None]
  - WEIGHT DECREASED [None]
  - WHITE BLOOD CELL COUNT DECREASED [None]
